FAERS Safety Report 7021743-X (Version None)
Quarter: 2010Q3

REPORT INFORMATION
  Report Type: 
  Country: None (occurrence: None)
  Receive Date: 20100930
  Receipt Date: 20100922
  Transmission Date: 20110219
  Serious: Yes (Hospitalization)
  Sender: FDA-Public Use
  Company Number: US-BIOGENIDEC-2010BI033341

PATIENT
  Age: 64 Year
  Sex: Female

DRUGS (1)
  1. AVONEX [Suspect]
     Indication: MULTIPLE SCLEROSIS
     Route: 030
     Dates: start: 20000801

REACTIONS (6)
  - BLOOD PRESSURE INCREASED [None]
  - DEPRESSION [None]
  - FUNGAL INFECTION [None]
  - HEART RATE INCREASED [None]
  - MALAISE [None]
  - STRESS [None]
